FAERS Safety Report 9445953 (Version 1)
Quarter: 2013Q3

REPORT INFORMATION
  Report Type: Spontaneous
  Country: US (occurrence: US)
  Receive Date: 20130807
  Receipt Date: 20130807
  Transmission Date: 20140515
  Serious: No
  Sender: FDA-Public Use
  Company Number: US-BAXTER-2013BAX030450

PATIENT
  Age: 6 Year
  Sex: Male

DRUGS (3)
  1. FEIBA NF [Suspect]
     Indication: HAEMORRHAGE PROPHYLAXIS
     Dosage: 2400 UNITS
     Route: 058
     Dates: start: 20130429
  2. OXYCODONE [Concomitant]
     Indication: PAIN
     Route: 048
  3. NOVOSEVEN [Concomitant]
     Indication: HAEMORRHAGE

REACTIONS (7)
  - Product reconstitution issue [Unknown]
  - Cough [Recovered/Resolved]
  - Chest pain [Recovered/Resolved]
  - Headache [Recovered/Resolved]
  - Dyspnoea [Recovered/Resolved]
  - Dizziness [Recovered/Resolved]
  - Dizziness [Recovered/Resolved]
